FAERS Safety Report 5843475-3 (Version None)
Quarter: 2008Q3

REPORT INFORMATION
  Report Type: 
  Country: None (occurrence: None)
  Receive Date: 20080811
  Receipt Date: 20080728
  Transmission Date: 20090109
  Serious: Yes (Other)
  Sender: FDA-Public Use
  Company Number: 220005M08FRA

PATIENT
  Age: 8 Year
  Sex: Male
  Weight: 22.4 kg

DRUGS (2)
  1. SAIZEN [Suspect]
     Indication: GROWTH RETARDATION
     Dosage: 1.71 MG, 1 IN 1 DAYS; 1.71 MG, 1 IN 1 DAYS
     Dates: start: 20070101, end: 20080101
  2. SAIZEN [Suspect]
     Indication: GROWTH RETARDATION
     Dosage: 1.71 MG, 1 IN 1 DAYS; 1.71 MG, 1 IN 1 DAYS
     Dates: start: 20080101

REACTIONS (3)
  - EPIPHYSIOLYSIS [None]
  - OSTEOCHONDROSIS [None]
  - PAIN [None]
